FAERS Safety Report 4290186-4 (Version None)
Quarter: 2004Q1

REPORT INFORMATION
  Report Type: 
  Country: None (occurrence: None)
  Receive Date: 20040209
  Receipt Date: 20040126
  Transmission Date: 20041129
  Serious: Yes (Death)
  Sender: FDA-Public Use
  Company Number: A04200400046

PATIENT
  Sex: Male

DRUGS (1)
  1. PLAVIX [Suspect]
     Dosage: 75 MG OD ORAL
     Route: 048
     Dates: end: 20040101

REACTIONS (1)
  - EMBOLISM [None]
